FAERS Safety Report 6209517-0 (Version None)
Quarter: 2009Q2

REPORT INFORMATION
  Report Type: 
  Country: None (occurrence: None)
  Receive Date: 20090527
  Receipt Date: 20090508
  Transmission Date: 20091009
  Serious: Yes (Hospitalization)
  Sender: FDA-Public Use
  Company Number: 2009-197121-NL

PATIENT
  Age: 46 Year
  Sex: Female

DRUGS (1)
  1. DESOGESTREL AND ETHINYL ESTRADIOL [Suspect]
     Dosage: 1 DF ORAL
     Route: 048
     Dates: start: 20050618, end: 20060512

REACTIONS (1)
  - HAEMORRHAGIC OVARIAN CYST [None]
